FAERS Safety Report 14221821 (Version 3)
Quarter: 2017Q4

REPORT INFORMATION
  Report Type: Report from Study
  Country: US (occurrence: US)
  Receive Date: 20171123
  Receipt Date: 20171228
  Transmission Date: 20180321
  Serious: Yes (Other)
  Sender: FDA-Public Use
  Company Number: US-ROCHE-2027581

PATIENT
  Age: 28 Year
  Sex: Female
  Weight: 76.5 kg

DRUGS (10)
  1. TRASTUZUMAB. [Suspect]
     Active Substance: TRASTUZUMAB
     Dosage: IN WEEKS 2-12; POST-RANDOMIZATION ?LAST DOSE PRIOR OT AE 27/AUG/2013
     Route: 042
  2. ZOLOFT [Concomitant]
     Active Substance: SERTRALINE HYDROCHLORIDE
     Indication: DEPRESSION
     Route: 048
     Dates: start: 2005
  3. PERTUZUMAB. [Suspect]
     Active Substance: PERTUZUMAB
     Indication: BREAST CANCER
     Dosage: LOADING DOSE, IN WEEK 1 (AS PER PROTOCOL).
     Route: 042
     Dates: start: 20130808
  4. TRASTUZUMAB. [Suspect]
     Active Substance: TRASTUZUMAB
     Indication: BREAST CANCER
     Dosage: LOADING DOSE, IN WEEK 1 (AS PER PROTOCOL).
     Route: 042
     Dates: start: 20130808
  5. ZOSYN [Concomitant]
     Active Substance: PIPERACILLIN SODIUM\TAZOBACTAM SODIUM
     Indication: INFECTION
     Route: 042
     Dates: start: 20130831, end: 20130903
  6. PERTUZUMAB. [Suspect]
     Active Substance: PERTUZUMAB
     Dosage: IN WEEKS 4, 7 AND 10; POST-RANDOMIZATION?LAST DOSE PRIOR OT AE 27/AUG/2013
     Route: 042
  7. VANCOMYCIN [Concomitant]
     Active Substance: VANCOMYCIN
     Indication: INFECTION
     Route: 042
     Dates: start: 20130630, end: 20130903
  8. PACLITAXEL. [Suspect]
     Active Substance: PACLITAXEL
     Indication: BREAST CANCER
     Dosage: 12 WEEKLY TREATMENT CYCLES (AS PER PROTOCOL).?LAST DOSE PRIOR OT AE 27/AUG/2013
     Route: 042
     Dates: start: 20130808
  9. CLARITIN (UNITED STATES) [Concomitant]
     Indication: HYPERSENSITIVITY
     Route: 048
     Dates: start: 2005
  10. IMODIUM [Concomitant]
     Active Substance: LOPERAMIDE HYDROCHLORIDE
     Indication: DIARRHOEA
     Route: 048
     Dates: start: 201308

REACTIONS (1)
  - Device related infection [Recovered/Resolved]

NARRATIVE: CASE EVENT DATE: 20130830
